FAERS Safety Report 24674122 (Version 6)
Quarter: 2025Q2

REPORT INFORMATION
  Report Type: Spontaneous
  Country: JP (occurrence: JP)
  Receive Date: 20241128
  Receipt Date: 20250403
  Transmission Date: 20250717
  Serious: Yes (Other)
  Sender: GALDERMA
  Company Number: JP-GALDERMA-JP2024017158

PATIENT

DRUGS (7)
  1. NEMOLIZUMAB [Suspect]
     Active Substance: NEMOLIZUMAB
     Indication: Dermatitis atopic
     Route: 058
     Dates: start: 20241004, end: 20241004
  2. Ledercort [Concomitant]
     Indication: Dermatitis atopic
     Route: 061
     Dates: start: 20240510, end: 20241213
  3. EURAX [Concomitant]
     Active Substance: CROTAMITON
     Indication: Dermatitis atopic
     Route: 061
     Dates: start: 20240510, end: 20241213
  4. CLOBETASOL [Concomitant]
     Active Substance: CLOBETASOL
     Indication: Dermatitis atopic
     Route: 061
     Dates: start: 20240510
  5. ZINC OXIDE [Concomitant]
     Active Substance: ZINC OXIDE
     Indication: Dermatitis atopic
     Route: 061
     Dates: start: 20240510
  6. Dermovat scalp [Concomitant]
     Indication: Dermatitis atopic
     Route: 061
     Dates: start: 20240510
  7. ALLEGRA [Concomitant]
     Active Substance: FEXOFENADINE HYDROCHLORIDE
     Indication: Dermatitis atopic
     Route: 048
     Dates: start: 20240510

REACTIONS (1)
  - Pemphigoid [Recovering/Resolving]

NARRATIVE: CASE EVENT DATE: 20241018
